FAERS Safety Report 9240664 (Version 1)
Quarter: 2013Q1

REPORT INFORMATION
  Report Type: Spontaneous
  Country: US (occurrence: None)
  Receive Date: 20121120
  Receipt Date: 20121120
  Transmission Date: 20140127
  Serious: No
  Sender: FDA-Public Use
  Company Number: 1000038746

PATIENT
  Age: 77 Year
  Sex: Female

DRUGS (10)
  1. VIIBRYD [Suspect]
     Indication: DEPRESSION
     Dosage: 10 MG (10 MG, 1 IN 1 D), ORAL
     Route: 048
     Dates: start: 201208, end: 201208
  2. VIIBRYD [Suspect]
     Indication: DEPRESSION
     Dosage: 40 MG (40 MG, 1 IN 1 D), ORAL
     Route: 048
     Dates: start: 201208, end: 201209
  3. LISINOPRIL (LISINOPRIL) (LISINOPRIL) [Concomitant]
  4. POTASSIUM (POTASSIUM) (POTASSIUM) [Concomitant]
  5. FUROSEMIDE [Concomitant]
  6. SYNTHROID (LEVOTHYROXINE SODIUM) (LEVOTHYROXINE SODIUM) [Concomitant]
  7. PRO-AIR (PROCATEROL HYDROCHLORIDE) (PROCATEROL HYDROCHLORIDE) [Concomitant]
  8. PREMARIN (ESTROGENS CONJUGATED) (ESTROGENS CONJUGATED) [Concomitant]
  9. SINGULAIR [Concomitant]
  10. SPIRIVA (TIOTROPIUM BROMIDE) (TIOTROPIUM BROMIDE) [Concomitant]

REACTIONS (1)
  - Confusional state [None]
